FAERS Safety Report 20232603 (Version 1)
Quarter: 2021Q4

REPORT INFORMATION
  Report Type: Spontaneous
  Country: JP (occurrence: JP)
  Receive Date: 20211227
  Receipt Date: 20211227
  Transmission Date: 20220303
  Serious: Yes (Death)
  Sender: FDA-Public Use
  Company Number: JP-PFIZER INC-202101783044

PATIENT
  Age: 70 Year

DRUGS (1)
  1. SUTENT [Suspect]
     Active Substance: SUNITINIB MALATE
     Dosage: 37.5
     Route: 048
     Dates: start: 20211214, end: 202112

REACTIONS (2)
  - White blood cell count decreased [Fatal]
  - Platelet count decreased [Fatal]
